FAERS Safety Report 25034346 (Version 3)
Quarter: 2025Q2

REPORT INFORMATION
  Report Type: Spontaneous
  Country: US (occurrence: US)
  Receive Date: 20250304
  Receipt Date: 20250402
  Transmission Date: 20250716
  Serious: No
  Sender: APOTEX
  Company Number: US-APOTEX-2025AP002331

PATIENT
  Sex: Female

DRUGS (1)
  1. OFLOXACIN [Suspect]
     Active Substance: OFLOXACIN
     Indication: Product used for unknown indication
     Route: 065

REACTIONS (3)
  - Extra dose administered [Unknown]
  - Product delivery mechanism issue [Unknown]
  - Product design issue [Unknown]
